FAERS Safety Report 21269622 (Version 2)
Quarter: 2022Q3

REPORT INFORMATION
  Report Type: Spontaneous
  Country: PL (occurrence: PL)
  Receive Date: 20220830
  Receipt Date: 20220901
  Transmission Date: 20221027
  Serious: Yes (Hospitalization, Other)
  Sender: FDA-Public Use
  Company Number: PL-NOVARTISPH-NVSC2022PL191044

PATIENT
  Age: 51 Year
  Sex: Female

DRUGS (2)
  1. ZOLEDRONIC ACID [Suspect]
     Active Substance: ZOLEDRONIC ACID
     Indication: HER2 negative breast cancer
     Dosage: UNK, EVERY SIX MONTHS
     Route: 065
  2. ANASTROZOLE [Suspect]
     Active Substance: ANASTROZOLE
     Indication: Product used for unknown indication
     Dosage: UNK,EVERY SIX MONTHS
     Route: 065

REACTIONS (5)
  - Pleural effusion [Unknown]
  - Dyspnoea [Unknown]
  - Metastases to pleura [Unknown]
  - Breast cancer [Unknown]
  - Malignant neoplasm progression [Unknown]
